FAERS Safety Report 4544859-6 (Version None)
Quarter: 2005Q1

REPORT INFORMATION
  Report Type: 
  Country: None (occurrence: None)
  Receive Date: 20050104
  Receipt Date: 20041220
  Transmission Date: 20050727
  Serious: Yes (Other)
  Sender: FDA-Public Use
  Company Number: FR-2004-036033

PATIENT
  Age: 19 Year
  Sex: Female
  Weight: 67 kg

DRUGS (1)
  1. YASMIN [Suspect]
     Dosage: 1 TAB (S),21D/28D, ORAL
     Route: 048
     Dates: start: 20040901, end: 20041101

REACTIONS (12)
  - ANAPHYLACTIC SHOCK [None]
  - EOSINOPHILIA [None]
  - ERYTHEMA [None]
  - FEELING ABNORMAL [None]
  - GASTROENTERITIS [None]
  - LOSS OF CONSCIOUSNESS [None]
  - NAUSEA [None]
  - PYREXIA [None]
  - SEPTIC SHOCK [None]
  - SKIN EXFOLIATION [None]
  - TOXIC SHOCK SYNDROME [None]
  - VOMITING [None]
